FAERS Safety Report 8860054 (Version 2)
Quarter: 2013Q3

REPORT INFORMATION
  Report Type: Report from Study
  Country: US (occurrence: US)
  Receive Date: 20121025
  Receipt Date: 20130807
  Transmission Date: 20140515
  Serious: Yes (Death)
  Sender: FDA-Public Use
  Company Number: US-BIOGENIDEC-2012BI047177

PATIENT
  Age: 78 Year
  Sex: Male
  Weight: 77 kg

DRUGS (12)
  1. TYSABRI [Suspect]
     Indication: MULTIPLE SCLEROSIS
     Route: 042
     Dates: start: 20080617, end: 20121002
  2. ANTIVERT [Concomitant]
     Indication: NAUSEA
     Dates: start: 201110, end: 201210
  3. ANTIVERT [Concomitant]
     Indication: DIZZINESS
     Dates: start: 201110, end: 201210
  4. HYDROCHLOROTHIAZIDE [Concomitant]
     Indication: SWELLING
     Dates: start: 200705, end: 201210
  5. LASIX [Concomitant]
     Indication: SWELLING
     Dates: start: 201106, end: 201210
  6. MIRAPEX [Concomitant]
     Indication: RESTLESS LEGS SYNDROME
     Dates: start: 200706, end: 201210
  7. NEXIUM [Concomitant]
     Indication: GASTROOESOPHAGEAL REFLUX DISEASE
     Dates: start: 201209, end: 201210
  8. POTASSIUM CHLORIDE [Concomitant]
     Indication: BLOOD POTASSIUM DECREASED
     Dates: start: 200705, end: 201210
  9. PREDNISONE [Concomitant]
     Indication: MULTIPLE SCLEROSIS RELAPSE
     Dates: start: 201206, end: 201210
  10. TEGRETOL [Concomitant]
     Indication: CONVULSION
     Dates: start: 201008, end: 201210
  11. VIMPAT [Concomitant]
     Indication: CONVULSION
     Dates: start: 201202, end: 201210
  12. VIMPAT [Concomitant]
     Indication: NEURALGIA
     Dates: start: 201202, end: 201210

REACTIONS (1)
  - Death [Fatal]
